FAERS Safety Report 22590003 (Version 2)
Quarter: 2025Q4

REPORT INFORMATION
  Report Type: Spontaneous
  Country: US (occurrence: US)
  Receive Date: 20230612
  Receipt Date: 20251110
  Transmission Date: 20260117
  Serious: No
  Sender: SANOFI AVENTIS
  Company Number: US-SA-SAC20230608000402

PATIENT
  Age: 56 Year
  Sex: Female

DRUGS (21)
  1. DUPIXENT [Suspect]
     Active Substance: DUPILUMAB
     Indication: Asthma
     Dosage: 1 DF, QOW
     Route: 058
     Dates: start: 20210126
  2. ZITHROMAX [Concomitant]
     Active Substance: AZITHROMYCIN DIHYDRATE
  3. PREDNISONE [Concomitant]
     Active Substance: PREDNISONE
  4. SPIRONOLACTONE [Concomitant]
     Active Substance: SPIRONOLACTONE
  5. LEVOTHYROXINE [Concomitant]
     Active Substance: LEVOTHYROXINE
  6. VITAMIN D3 [Concomitant]
     Active Substance: CHOLECALCIFEROL
  7. POTASSIUM CHLORIDE [Concomitant]
     Active Substance: POTASSIUM CHLORIDE
  8. WELLBUTRIN [Concomitant]
     Active Substance: BUPROPION HYDROCHLORIDE
  9. ABILIFY [Concomitant]
     Active Substance: ARIPIPRAZOLE
  10. SIMVASTATIN [Concomitant]
     Active Substance: SIMVASTATIN
  11. METFORMIN HYDROCHLORIDE [Concomitant]
     Active Substance: METFORMIN HYDROCHLORIDE
  12. LAMOTRIGINE [Concomitant]
     Active Substance: LAMOTRIGINE
  13. MOUNJARO [Concomitant]
     Active Substance: TIRZEPATIDE
  14. LAMICTAL [Concomitant]
     Active Substance: LAMOTRIGINE
  15. CHLORTHALIDONE [Concomitant]
     Active Substance: CHLORTHALIDONE
  16. TIZANIDINE HYDROCHLORIDE [Concomitant]
     Active Substance: TIZANIDINE HYDROCHLORIDE
  17. TOPAMAX [Concomitant]
     Active Substance: TOPIRAMATE
  18. BROVANA [Concomitant]
     Active Substance: ARFORMOTEROL TARTRATE
  19. ARMODAFINIL [Concomitant]
     Active Substance: ARMODAFINIL
  20. LEVSIN [Concomitant]
     Active Substance: HYOSCYAMINE SULFATE
  21. AZITHROMYCIN [Concomitant]
     Active Substance: AZITHROMYCIN

REACTIONS (4)
  - Lung disorder [Recovered/Resolved]
  - Illness [Recovered/Resolved]
  - Nasopharyngitis [Unknown]
  - Asthma [Unknown]

NARRATIVE: CASE EVENT DATE: 20230530
